FAERS Safety Report 5742270-3 (Version None)
Quarter: 2008Q2

REPORT INFORMATION
  Report Type: 
  Country: None (occurrence: None)
  Receive Date: 20080519
  Receipt Date: 20080514
  Transmission Date: 20081010
  Serious: Yes (Death, Other)
  Sender: FDA-Public Use
  Company Number: PHHY2008JP08010

PATIENT
  Age: 70 Year
  Sex: Male

DRUGS (4)
  1. DICLOFENAC SODIUM [Suspect]
  2. METHOTREXATE [Suspect]
     Indication: METASTASES TO MENINGES
     Dosage: 15 MG
  3. LOXOPROFEN [Suspect]
  4. SULFAMETHOXAZOLE AND TRIMETHOPRIM [Suspect]

REACTIONS (2)
  - DRUG INTERACTION [None]
  - PANCYTOPENIA [None]
